FAERS Safety Report 7701252-2 (Version None)
Quarter: 2011Q3

REPORT INFORMATION
  Report Type: 
  Country: None (occurrence: None)
  Receive Date: 20110822
  Receipt Date: 20110814
  Transmission Date: 20111222
  Serious: Yes (Hospitalization)
  Sender: FDA-Public Use
  Company Number: US-GLAXOSMITHKLINE-A0941747A

PATIENT
  Age: 40 Year
  Sex: Female
  Weight: 72.1 kg

DRUGS (4)
  1. REVATIO [Concomitant]
  2. TRACLEER [Concomitant]
  3. FLOLAN [Suspect]
     Indication: PULMONARY ARTERIAL HYPERTENSION
     Route: 065
     Dates: start: 20091116
  4. OXYGEN [Concomitant]

REACTIONS (1)
  - HAEMORRHAGE INTRACRANIAL [None]
